FAERS Safety Report 12311607 (Version 1)
Quarter: 2016Q2

REPORT INFORMATION
  Report Type: Spontaneous
  Country: GB (occurrence: GB)
  Receive Date: 20160427
  Receipt Date: 20160427
  Transmission Date: 20160815
  Serious: Yes (Hospitalization, Other)
  Sender: FDA-Public Use
  Company Number: GB-WATSON-2016-08257

PATIENT
  Age: 29 Year
  Sex: Male

DRUGS (5)
  1. TRIMETHOPRIM (UNKNOWN) [Suspect]
     Active Substance: TRIMETHOPRIM
     Indication: EAR INFECTION
     Dosage: UNK
     Route: 065
  2. OMEPRAZOLE. [Concomitant]
     Active Substance: OMEPRAZOLE
     Indication: GASTROOESOPHAGEAL REFLUX DISEASE
     Dosage: 20 MG, DAILY
     Route: 048
  3. CLOZARIL [Suspect]
     Active Substance: CLOZAPINE
     Indication: SCHIZOPHRENIA
     Dosage: 625 MG, DAILY
     Route: 048
     Dates: start: 20020903, end: 20160224
  4. SERTRALINE [Concomitant]
     Active Substance: SERTRALINE HYDROCHLORIDE
     Indication: OBSESSIVE-COMPULSIVE DISORDER
     Dosage: 150 MG, DAILY
     Route: 048
  5. TRIMETHOPRIM (UNKNOWN) [Suspect]
     Active Substance: TRIMETHOPRIM
     Indication: URINARY TRACT INFECTION
     Dosage: UNK
     Route: 048
     Dates: end: 20160224

REACTIONS (13)
  - Malaise [Unknown]
  - Haemoglobin decreased [Not Recovered/Not Resolved]
  - Urinary tract infection [Recovered/Resolved]
  - Blood creatine phosphokinase increased [Unknown]
  - Ear infection [Recovered/Resolved]
  - White blood cell count decreased [Recovered/Resolved]
  - Glomerular filtration rate decreased [Recovering/Resolving]
  - Mental disorder [Unknown]
  - Pyelonephritis [Recovered/Resolved]
  - Neutrophil count decreased [Recovered/Resolved]
  - Platelet count decreased [Recovering/Resolving]
  - Seizure [Recovered/Resolved]
  - Acute kidney injury [Recovered/Resolved]

NARRATIVE: CASE EVENT DATE: 20160128
